FAERS Safety Report 5307019-7 (Version None)
Quarter: 2007Q2

REPORT INFORMATION
  Report Type: 
  Country: None (occurrence: None)
  Receive Date: 20070425
  Receipt Date: 20070416
  Transmission Date: 20071010
  Serious: Yes (Death, Life-Threatening)
  Sender: FDA-Public Use
  Company Number: GB-JNJFOC-20070403402

PATIENT
  Sex: Male

DRUGS (1)
  1. REMICADE [Suspect]
     Indication: PSORIASIS
     Route: 042

REACTIONS (5)
  - CARDIAC ARREST [None]
  - DEPRESSION [None]
  - RESPIRATORY FUME INHALATION DISORDER [None]
  - SUICIDE ATTEMPT [None]
  - THERMAL BURN [None]
